FAERS Safety Report 13277615 (Version 5)
Quarter: 2017Q2

REPORT INFORMATION
  Report Type: Report from Study
  Country: AT (occurrence: AT)
  Receive Date: 20170228
  Receipt Date: 20170406
  Transmission Date: 20170830
  Serious: Yes (Other)
  Sender: FDA-Public Use
  Company Number: AT-GILEAD-2017-0259618

PATIENT
  Sex: Female

DRUGS (14)
  1. SUBSTITOL [Concomitant]
     Active Substance: MORPHINE SULFATE
     Dosage: 200 DF, QD
     Dates: start: 20161221
  2. THROMBO ASS [Concomitant]
     Active Substance: ASPIRIN
  3. APREDNISLON [Concomitant]
     Active Substance: PREDNISOLONE
  4. TENOFOVIR DISOPROXIL FUMARATE. [Suspect]
     Active Substance: TENOFOVIR DISOPROXIL FUMARATE
     Indication: HIV INFECTION
     Dosage: 245 MG, QD
     Route: 048
  5. PRAM                               /00582602/ [Concomitant]
  6. PANTIP [Concomitant]
  7. SUBSTITOL [Concomitant]
     Active Substance: MORPHINE SULFATE
     Dosage: 200 DF, BID
     Dates: start: 20161221
  8. RENVELA [Concomitant]
     Active Substance: SEVELAMER CARBONATE
  9. FOLSAN [Concomitant]
     Active Substance: FOLIC ACID
  10. SUBSTITOL [Concomitant]
     Active Substance: MORPHINE SULFATE
     Dosage: 200 MG, QD
     Dates: start: 20050101
  11. PASPERTIN                          /00041902/ [Concomitant]
     Active Substance: METOCLOPRAMIDE HYDROCHLORIDE
  12. EPIVIR [Concomitant]
     Active Substance: LAMIVUDINE
     Indication: HIV INFECTION
     Dosage: 25 MG, QD
     Route: 048
  13. KALETRA [Concomitant]
     Active Substance: LOPINAVIR\RITONAVIR
     Indication: HIV INFECTION
     Dosage: 1 DF, BID
     Route: 048
  14. NEPHROTRANS [Concomitant]
     Active Substance: SODIUM BICARBONATE

REACTIONS (3)
  - Off label use [Recovered/Resolved]
  - Dialysis [Not Recovered/Not Resolved]
  - Sepsis [Recovered/Resolved]
